FAERS Safety Report 9449370 (Version 2)
Quarter: 2013Q3

REPORT INFORMATION
  Report Type: Report from Study
  Country: DE (occurrence: DE)
  Receive Date: 20130809
  Receipt Date: 20130910
  Transmission Date: 20140515
  Serious: Yes (Hospitalization)
  Sender: FDA-Public Use
  Company Number: DE-AMGEN-DEUCT2013055719

PATIENT
  Age: 25 Year
  Sex: Female

DRUGS (14)
  1. ETANERCEPT [Suspect]
     Indication: JUVENILE IDIOPATHIC ARTHRITIS
     Dosage: 0.8 MG/KG, WEEKLY
     Route: 065
     Dates: start: 20020315, end: 20030615
  2. METHOTREXATE SODIUM [Concomitant]
     Dosage: 7.5 MG, UNK
     Dates: start: 19920301
  3. METHOTREXATE SODIUM [Concomitant]
     Dosage: 15 MG, UNK
  4. HUMIRA [Concomitant]
     Dosage: 40 MG, EVERY 2 WEEKS
     Dates: start: 20080815, end: 20110815
  5. HUMIRA [Concomitant]
     Dosage: 40 MG, EVERY 2 WEEKS
     Route: 048
     Dates: start: 20120715
  6. METHOTREXATE [Concomitant]
     Dosage: 15 MG PER WEEK
     Route: 048
  7. PREDNISOLONE [Concomitant]
     Dosage: 2.5 MG/DAY
  8. RAMIPRIL [Concomitant]
     Dosage: 1.25 MG/DAY
  9. BENZALKONIUM CHLORIDE [Concomitant]
     Dosage: UNK
  10. EDETATE DISODIUM [Concomitant]
     Dosage: UNK
  11. HYPROMELLOSE [Concomitant]
     Dosage: UNK
  12. PREDNISOLONE ACETATE [Concomitant]
     Dosage: UNK
  13. NAPROXEN [Concomitant]
     Dosage: 250 MG, 2X/DAY
     Dates: start: 19970901
  14. CICLOSPORIN [Concomitant]
     Dosage: 200 MG, 2X/DAY
     Dates: start: 19950901

REACTIONS (1)
  - Oligodendroglioma [Recovered/Resolved]
